FAERS Safety Report 8346918-9 (Version None)
Quarter: 2012Q2

REPORT INFORMATION
  Report Type: 
  Country: None (occurrence: None)
  Receive Date: 20120509
  Receipt Date: 20120504
  Transmission Date: 20120825
  Serious: Yes (Hospitalization)
  Sender: FDA-Public Use
  Company Number: PHHY2012GB038172

PATIENT
  Age: 53 Year
  Sex: Female
  Weight: 110 kg

DRUGS (10)
  1. WARFARIN SODIUM [Interacting]
     Indication: PULMONARY EMBOLISM
  2. PANTOPRAZOLE [Concomitant]
     Dosage: 40 MG, QD
     Route: 048
  3. TINZAPARIN [Interacting]
     Dosage: 175 U/KG
     Route: 058
  4. IMMUNE GLOBULIN (HUMAN) [Suspect]
     Indication: IMMUNODEFICIENCY
     Dosage: 25 G QW3
  5. RAMIPRIL [Concomitant]
     Dosage: 10 MG, QD
  6. PHENOXYMETHYLPENICILLIN [Concomitant]
     Dosage: 500 MG, BID
     Route: 048
  7. FLUTICASONE PROPIONATE [Concomitant]
     Dosage: 250 UG, BID
  8. URSODIOL [Concomitant]
     Dosage: 500 MG, BID
     Route: 048
  9. ACETAMINOPHEN [Concomitant]
     Indication: PAIN
     Dosage: 1 G, QID
     Route: 048
  10. TRAMADOL HYDROCHLORIDE [Concomitant]
     Dosage: 100 MG, QID

REACTIONS (2)
  - INTERNATIONAL NORMALISED RATIO DECREASED [None]
  - DRUG INTERACTION [None]
